FAERS Safety Report 16090594 (Version 1)
Quarter: 2019Q1

REPORT INFORMATION
  Report Type: Spontaneous
  Country: AU (occurrence: AU)
  Receive Date: 20190319
  Receipt Date: 20190319
  Transmission Date: 20190418
  Serious: Yes (Other)
  Sender: FDA-Public Use
  Company Number: AU-ASTRAZENECA-2019SE29968

PATIENT
  Age: 49 Year
  Sex: Male

DRUGS (4)
  1. SYMBICORT [Suspect]
     Active Substance: BUDESONIDE\FORMOTEROL FUMARATE DIHYDRATE
     Indication: ASTHMA
     Dosage: 160/4.5 ???G (200/6 ???G), TWO DOSES TWICE DAILY
     Route: 055
     Dates: start: 20190129
  2. CLINDAMYCIN. [Concomitant]
     Active Substance: CLINDAMYCIN
  3. AUGMENTINE DUE FORTE [Concomitant]
  4. SYMBICORT [Suspect]
     Active Substance: BUDESONIDE\FORMOTEROL FUMARATE DIHYDRATE
     Indication: ASTHMA
     Dosage: 160/4.5 ???G (200/6 ???G), TWO DOSES TWICE DAILY
     Route: 055
     Dates: start: 20190115, end: 20190128

REACTIONS (3)
  - Device issue [Recovered/Resolved]
  - Dyspnoea [Unknown]
  - Product dose omission [Recovered/Resolved]

NARRATIVE: CASE EVENT DATE: 20190115
